FAERS Safety Report 5467531-7 (Version None)
Quarter: 2007Q3

REPORT INFORMATION
  Report Type: 
  Country: None (occurrence: None)
  Receive Date: 20070925
  Receipt Date: 20070920
  Transmission Date: 20080115
  Serious: Yes (Hospitalization)
  Sender: FDA-Public Use
  Company Number: JP-BOEHRINGER INGELHEIM PHARMACEUTICALS, INC.-2007-BP-18512NB

PATIENT
  Sex: Female
  Weight: 52.9 kg

DRUGS (3)
  1. MICARDIS [Suspect]
     Indication: HYPERTENSION
     Route: 048
     Dates: start: 20060714
  2. PRAVASTATIN [Concomitant]
     Indication: HYPERLIPIDAEMIA
     Route: 048
     Dates: start: 20060714
  3. MEXITIL [Concomitant]
     Route: 048
     Dates: start: 20061010

REACTIONS (2)
  - CEREBRAL INFARCTION [None]
  - DIARRHOEA [None]
